FAERS Safety Report 6151808-6 (Version None)
Quarter: 2009Q2

REPORT INFORMATION
  Report Type: 
  Country: None (occurrence: None)
  Receive Date: 20090410
  Receipt Date: 20090401
  Transmission Date: 20091009
  Serious: Yes (Hospitalization)
  Sender: FDA-Public Use
  Company Number: SE-JNJFOC-20040105311

PATIENT
  Age: 50 Year
  Sex: Female

DRUGS (10)
  1. REMICADE [Suspect]
     Route: 042
  2. REMICADE [Suspect]
     Indication: SPONDYLITIS
     Route: 042
  3. METHOTREXATE [Concomitant]
  4. FOLACIN [Concomitant]
  5. ORALOVITE [Concomitant]
  6. PARACETAMOL [Concomitant]
     Route: 048
  7. LANZOPRAZOLE [Concomitant]
  8. CALCICHEW D3 [Concomitant]
  9. TRADOLAN [Concomitant]
  10. CELEBRA [Concomitant]

REACTIONS (1)
  - BREAST CANCER METASTATIC [None]
